FAERS Safety Report 16872449 (Version 2)
Quarter: 2019Q4

REPORT INFORMATION
  Report Type: Report from Study
  Country: US (occurrence: US)
  Receive Date: 20191001
  Receipt Date: 20191031
  Transmission Date: 20200122
  Serious: Yes (Other)
  Sender: FDA-Public Use
  Company Number: US-ASTELLAS-2019US030890

PATIENT
  Sex: Male

DRUGS (3)
  1. ENZALUTAMIDE [Suspect]
     Active Substance: ENZALUTAMIDE
     Route: 048
  2. ENZALUTAMIDE [Suspect]
     Active Substance: ENZALUTAMIDE
     Route: 048
  3. ENZALUTAMIDE [Suspect]
     Active Substance: ENZALUTAMIDE
     Indication: PROSTATE CANCER
     Route: 048
     Dates: start: 20190611

REACTIONS (7)
  - Incoherent [Unknown]
  - Abdominal pain upper [Unknown]
  - Pulmonary oedema [Recovered/Resolved with Sequelae]
  - Urinary tract infection [Recovering/Resolving]
  - Bronchitis [Recovered/Resolved]
  - Feeding disorder [Unknown]
  - Intentional dose omission [Recovered/Resolved]
